FAERS Safety Report 4709360-5 (Version None)
Quarter: 2005Q3

REPORT INFORMATION
  Report Type: 
  Country: None (occurrence: None)
  Receive Date: 20050708
  Receipt Date: 20050707
  Transmission Date: 20060218
  Serious: Yes (Death)
  Sender: FDA-Public Use
  Company Number: PHBS2005ES09754

PATIENT
  Age: 84 Year
  Sex: Female

DRUGS (4)
  1. DIANBEN [Suspect]
     Dosage: 1.7 G/D
     Route: 048
     Dates: start: 20040917, end: 20050409
  2. AMLODIPINE [Suspect]
     Dosage: 5 MG/D
     Route: 048
     Dates: start: 20041026, end: 20050409
  3. SIMVASTATIN [Suspect]
     Dosage: 10 MG/D
     Route: 048
     Dates: start: 20041209, end: 20050409
  4. EXELON [Suspect]
     Indication: DEMENTIA ALZHEIMER'S TYPE
     Dosage: 9 MG/D
     Route: 048
     Dates: start: 20041110, end: 20050409

REACTIONS (4)
  - DEATH [None]
  - MALAISE [None]
  - NAUSEA [None]
  - PYREXIA [None]
